FAERS Safety Report 11867865 (Version 1)
Quarter: 2015Q4

REPORT INFORMATION
  Report Type: Spontaneous
  Country: US (occurrence: None)
  Receive Date: 20151223
  Receipt Date: 20151223
  Transmission Date: 20160305
  Serious: Yes (Disabling)
  Sender: FDA-Public Use
  Company Number: None

PATIENT
  Age: 56 Year
  Sex: Female
  Weight: 66.23 kg

DRUGS (1)
  1. LEVAQUIN [Suspect]
     Active Substance: LEVOFLOXACIN
     Indication: RESPIRATORY TRACT INFECTION
     Dosage: 1 PILL
     Route: 048
     Dates: start: 20151203, end: 20151213

REACTIONS (4)
  - Joint swelling [None]
  - Gait disturbance [None]
  - Dysstasia [None]
  - Arthralgia [None]

NARRATIVE: CASE EVENT DATE: 20151203
